FAERS Safety Report 5096821-5 (Version None)
Quarter: 2006Q3

REPORT INFORMATION
  Report Type: 
  Country: None (occurrence: None)
  Receive Date: 20060831
  Receipt Date: 20060822
  Transmission Date: 20061208
  Serious: Yes (Other)
  Sender: FDA-Public Use
  Company Number: US-2006-024279

PATIENT
  Sex: Male

DRUGS (1)
  1. MIRENA [Suspect]
     Dosage: 0
     Dates: start: 20060601, end: 20060601

REACTIONS (3)
  - CONTRACEPTIVE DEVICE COMPLICATION [None]
  - LACERATION [None]
  - PENIS DISORDER [None]
